FAERS Safety Report 21568808 (Version 2)
Quarter: 2023Q1

REPORT INFORMATION
  Report Type: Report from Study
  Country: US (occurrence: US)
  Receive Date: 20221108
  Receipt Date: 20230104
  Transmission Date: 20230418
  Serious: Yes (Hospitalization, Other)
  Sender: FDA-Public Use
  Company Number: US-ABBVIE-4191568

PATIENT
  Age: 67 Year
  Sex: Female
  Weight: 41 kg

DRUGS (3)
  1. HUMIRA [Suspect]
     Active Substance: ADALIMUMAB
     Indication: Crohn^s disease
     Route: 058
     Dates: start: 201911
  2. HUMIRA [Suspect]
     Active Substance: ADALIMUMAB
     Indication: Hidradenitis
     Route: 058
  3. IBUPROFEN [Suspect]
     Active Substance: IBUPROFEN
     Indication: Hidradenitis
     Route: 065

REACTIONS (12)
  - Dizziness [Recovered/Resolved]
  - Asthenia [Recovering/Resolving]
  - Dizziness [Unknown]
  - Vomiting [Recovered/Resolved]
  - Disorientation [Recovering/Resolving]
  - Furuncle [Recovered/Resolved]
  - Full blood count decreased [Recovering/Resolving]
  - Pain [Recovering/Resolving]
  - Hypotension [Recovering/Resolving]
  - Gastric ulcer [Not Recovered/Not Resolved]
  - Sepsis [Recovered/Resolved]
  - Decreased appetite [Recovering/Resolving]

NARRATIVE: CASE EVENT DATE: 20221001
